FAERS Safety Report 8540037-4 (Version None)
Quarter: 2012Q3

REPORT INFORMATION
  Report Type: 
  Country: None (occurrence: None)
  Receive Date: 20120726
  Receipt Date: 20120724
  Transmission Date: 20120928
  Serious: Yes (Other)
  Sender: FDA-Public Use
  Company Number: FR-ROCHE-1020140

PATIENT
  Sex: Male

DRUGS (10)
  1. TG4040 (MVA-HCV) [Suspect]
     Indication: HEPATITIS C
     Dosage: 10X7PFU
     Route: 058
     Dates: start: 20110404, end: 20110915
  2. PLAVIX [Concomitant]
     Indication: TACHYCARDIA
  3. COPEGUS [Suspect]
     Indication: HEPATITIS C
     Dosage: LAST DOSE PRIOR TO SAE ON 18 OCTOBER 2011, FORM: NOT REPORTED
     Route: 048
     Dates: start: 20110308
  4. ACETAMINOPHEN [Concomitant]
     Indication: INFLUENZA LIKE ILLNESS
     Route: 048
     Dates: start: 20110308
  5. VITAMIN D [Concomitant]
     Indication: VITAMIN D DEFICIENCY
     Route: 048
     Dates: start: 20110314
  6. BISOPROLOL FUMARATE [Concomitant]
     Indication: HYPERTENSION
     Route: 048
     Dates: start: 20110823
  7. PEGASYS [Suspect]
     Indication: HEPATITIS C
     Dosage: LAST DOSE PRIOR TO SAE ON 17 OCTOBER 2011, FORM: NOT REPORTED
     Route: 058
     Dates: start: 20110308
  8. VALSARTAN [Concomitant]
     Indication: ABDOMINAL PAIN UPPER
     Route: 048
     Dates: start: 20110411
  9. PLAVIX [Concomitant]
     Indication: HYPERTENSION
     Route: 048
     Dates: start: 20110823
  10. BISOPROLOL FUMARATE [Concomitant]
     Indication: TACHYCARDIA

REACTIONS (1)
  - PROSTATITIS [None]
